FAERS Safety Report 14669489 (Version 1)
Quarter: 2018Q1

REPORT INFORMATION
  Report Type: Spontaneous
  Country: RU (occurrence: RU)
  Receive Date: 20180322
  Receipt Date: 20180322
  Transmission Date: 20180509
  Serious: Yes (Hospitalization, Other)
  Sender: FDA-Public Use
  Company Number: RU-SA-2018SA081846

PATIENT
  Age: 75 Year
  Sex: Male

DRUGS (3)
  1. QUETIAPINE. [Suspect]
     Active Substance: QUETIAPINE
     Route: 065
  2. CLEXANE [Suspect]
     Active Substance: ENOXAPARIN SODIUM
     Route: 065
  3. FRAXIPARINE [Suspect]
     Active Substance: NADROPARIN CALCIUM
     Route: 065

REACTIONS (5)
  - Neoplasm malignant [Recovering/Resolving]
  - Erysipelas [Recovering/Resolving]
  - Depression [Recovering/Resolving]
  - Wound [Recovering/Resolving]
  - Sleep disorder [Recovering/Resolving]

NARRATIVE: CASE EVENT DATE: 20140715
